FAERS Safety Report 6793027-6 (Version None)
Quarter: 2010Q2

REPORT INFORMATION
  Report Type: 
  Country: None (occurrence: None)
  Receive Date: 20100624
  Receipt Date: 20081203
  Transmission Date: 20101027
  Serious: No
  Sender: FDA-Public Use
  Company Number: US-PFIZER INC-2008151946

PATIENT
  Sex: Female
  Weight: 68.027 kg

DRUGS (3)
  1. CADUET [Suspect]
     Indication: HYPERTENSION
     Dosage: AMLODIPINE 5 MG/ATORVASTATIN 10 MG
     Dates: start: 20080101
  2. CADUET [Suspect]
     Indication: BLOOD CHOLESTEROL INCREASED
  3. SERTRALINE HYDROCHLORIDE [Concomitant]
     Dosage: UNK

REACTIONS (3)
  - DIZZINESS [None]
  - DRUG DOSE OMISSION [None]
  - MALAISE [None]
